FAERS Safety Report 4941519-4 (Version None)
Quarter: 2006Q1

REPORT INFORMATION
  Report Type: 
  Country: None (occurrence: None)
  Receive Date: 20060313
  Receipt Date: 20060227
  Transmission Date: 20060701
  Serious: Yes (Other)
  Sender: FDA-Public Use
  Company Number: PHNU2006DE01208

PATIENT
  Sex: Female

DRUGS (6)
  1. TEGRETOL [Suspect]
     Indication: GRAND MAL CONVULSION
     Dosage: 800 MG/D
     Dates: end: 20040101
  2. TEGRETOL [Suspect]
     Dosage: 700 MG/D
     Dates: start: 20040101
  3. TEGRETOL [Suspect]
     Dosage: 800 MG/D
     Dates: start: 20040101
  4. TEGRETOL [Suspect]
     Dosage: REDUCED OVER 4 WEEKS
     Dates: end: 20060201
  5. CONTRACEPTIVES UNS [Concomitant]
  6. KEPPRA [Concomitant]
     Dosage: 3000 MG/D
     Dates: start: 20060201

REACTIONS (13)
  - ADRENOCORTICAL INSUFFICIENCY ACUTE [None]
  - AURA [None]
  - BLOOD CORTICOTROPHIN ABNORMAL [None]
  - DEHYDROEPIANDROSTERONE DECREASED [None]
  - DEPRESSION [None]
  - EYELID FUNCTION DISORDER [None]
  - FATIGUE [None]
  - GAMMA-GLUTAMYLTRANSFERASE INCREASED [None]
  - HYPONATRAEMIA [None]
  - HYPOTENSION [None]
  - IRON DEFICIENCY [None]
  - SIMPLE PARTIAL SEIZURES [None]
  - SOMNOLENCE [None]
